FAERS Safety Report 9376474 (Version 1)
Quarter: 2013Q3

REPORT INFORMATION
  Report Type: Spontaneous
  Country: PT (occurrence: PT)
  Receive Date: 20130701
  Receipt Date: 20130701
  Transmission Date: 20140515
  Serious: Yes (Other)
  Sender: FDA-Public Use
  Company Number: PT-JNJFOC-20130619524

PATIENT
  Sex: Female

DRUGS (2)
  1. DOXORUBICIN [Suspect]
     Indication: BREAST CANCER
     Dosage: MAXIMUM DOSE FOR 18 MONTHS
     Route: 042
  2. RADIOTHERAPY [Suspect]
     Indication: BREAST CANCER
     Route: 065

REACTIONS (1)
  - Left ventricular dysfunction [Unknown]
